FAERS Safety Report 20573388 (Version 1)
Quarter: 2022Q1

REPORT INFORMATION
  Report Type: Spontaneous
  Country: US (occurrence: None)
  Receive Date: 20220309
  Receipt Date: 20220309
  Transmission Date: 20220423
  Serious: Yes (Death)
  Sender: FDA-Public Use
  Company Number: None

PATIENT
  Age: 22 Year
  Sex: Female

DRUGS (2)
  1. MIFEPRISTONE [Suspect]
     Active Substance: MIFEPRISTONE
     Indication: Abortion induced
     Dosage: FREQUENCY : ONCE;?
     Route: 048
     Dates: start: 20210603
  2. MISOPROSTOL [Suspect]
     Active Substance: MISOPROSTOL
     Indication: Abortion induced
     Dosage: FREQUENCY : ONCE;?
     Route: 002
     Dates: start: 20210604, end: 20210604

REACTIONS (2)
  - Anaphylactic reaction [None]
  - Accidental death [None]

NARRATIVE: CASE EVENT DATE: 20210604
